FAERS Safety Report 18868883 (Version 2)
Quarter: 2021Q1

REPORT INFORMATION
  Report Type: Report from Study
  Country: US (occurrence: US)
  Receive Date: 20210209
  Receipt Date: 20210328
  Transmission Date: 20210420
  Serious: Yes (Life-Threatening, Hospitalization, Other)
  Sender: FDA-Public Use
  Company Number: US-BRISTOL-MYERS SQUIBB COMPANY-BMS-2021-006993

PATIENT
  Age: 65 Year
  Sex: Male
  Weight: 89.4 kg

DRUGS (2)
  1. NIVOLUMAB [Suspect]
     Active Substance: NIVOLUMAB
     Indication: RENAL CELL CARCINOMA
     Dosage: 286 MILLIGRAM
     Route: 042
     Dates: start: 20201230, end: 20210120
  2. IPILIMUMAB [Suspect]
     Active Substance: IPILIMUMAB
     Indication: RENAL CELL CARCINOMA
     Dosage: 95 MILLIGRAM
     Route: 042
     Dates: start: 20201230, end: 20210120

REACTIONS (4)
  - Hypotension [Recovering/Resolving]
  - Colitis [Unknown]
  - Atrial fibrillation [Unknown]
  - Acute kidney injury [Unknown]

NARRATIVE: CASE EVENT DATE: 20210110
